FAERS Safety Report 24287367 (Version 1)
Quarter: 2024Q3

REPORT INFORMATION
  Report Type: Spontaneous
  Country: US (occurrence: None)
  Receive Date: 20240904
  Receipt Date: 20240904
  Transmission Date: 20241016
  Serious: Yes (Hospitalization)
  Sender: Public
  Company Number: None

PATIENT
  Age: 36 Year
  Sex: Male
  Weight: 79.4 kg

DRUGS (3)
  1. CYTARABINE [Suspect]
     Active Substance: CYTARABINE
  2. METHOTREXATE [Concomitant]
     Active Substance: METHOTREXATE
  3. PONATINIB [Concomitant]
     Active Substance: PONATINIB

REACTIONS (6)
  - Diarrhoea [None]
  - Pyrexia [None]
  - Chills [None]
  - Febrile neutropenia [None]
  - Sepsis [None]
  - Dehydration [None]

NARRATIVE: CASE EVENT DATE: 20240831
